FAERS Safety Report 26016345 (Version 1)
Quarter: 2025Q4

REPORT INFORMATION
  Report Type: Spontaneous
  Country: US (occurrence: US)
  Receive Date: 20251110
  Receipt Date: 20251110
  Transmission Date: 20260119
  Serious: No
  Sender: NOVARTIS
  Company Number: US-002147023-NVSC2025US169837

PATIENT
  Sex: Female

DRUGS (2)
  1. LETROZOLE [Suspect]
     Active Substance: LETROZOLE
     Indication: Breast cancer
     Dosage: 125 MG, QD, FOR 21 DAYS ON AND 7 DAYS OFF
     Route: 048
     Dates: start: 20210318, end: 202510
  2. LETROZOLE [Suspect]
     Active Substance: LETROZOLE
     Dosage: 75 MG, FOR 21 DAYS ON AND 7 DAYS OFF
     Route: 048

REACTIONS (1)
  - Ear infection fungal [Unknown]
